FAERS Safety Report 25245769 (Version 2)
Quarter: 2025Q2

REPORT INFORMATION
  Report Type: Report from Study
  Country: KR (occurrence: KR)
  Receive Date: 20250428
  Receipt Date: 20250524
  Transmission Date: 20250716
  Serious: Yes (Hospitalization)
  Sender: ABBVIE
  Company Number: KR-PFIZER INC-PV202500049067

PATIENT
  Age: 85 Year
  Sex: Male
  Weight: 66.4 kg

DRUGS (25)
  1. AVIBACTAM SODIUM\CEFTAZIDIME [Suspect]
     Active Substance: AVIBACTAM SODIUM\CEFTAZIDIME
     Indication: Abdominal infection
     Route: 042
     Dates: start: 20250122, end: 20250207
  2. MAGNESIUM SULFATE [Concomitant]
     Active Substance: MAGNESIUM SULFATE
     Indication: Prophylaxis
     Route: 042
     Dates: start: 20250116, end: 20250116
  3. ACETPHEN PREMIX [Concomitant]
     Indication: Prophylaxis
     Route: 042
     Dates: start: 20250117, end: 20250124
  4. HUMULIN R [Concomitant]
     Active Substance: INSULIN HUMAN
     Indication: Urine output decreased
     Route: 042
     Dates: start: 20250115, end: 20250121
  5. AMINO ACIDS\DEXTROSE\ELECTROLYTES NOS\SOYBEAN OIL [Concomitant]
     Active Substance: AMINO ACIDS\DEXTROSE\ELECTROLYTES NOS\SOYBEAN OIL
     Indication: Prophylaxis
     Route: 042
     Dates: start: 20250117, end: 20250121
  6. LASIX [Concomitant]
     Active Substance: FUROSEMIDE
     Indication: Urine output decreased
     Route: 042
     Dates: start: 20250115, end: 20250121
  7. VITAMINS [Concomitant]
     Active Substance: VITAMINS
     Indication: Prophylaxis
     Route: 042
     Dates: start: 20250115, end: 20250121
  8. CALCIUM GLUCONATE [Concomitant]
     Active Substance: CALCIUM GLUCONATE
     Indication: Prophylaxis
     Route: 042
     Dates: start: 20250116, end: 20250116
  9. NEXIUM [Concomitant]
     Active Substance: ESOMEPRAZOLE MAGNESIUM
     Indication: Prophylaxis
     Route: 042
     Dates: start: 20250115, end: 20250121
  10. DILID [Concomitant]
     Indication: Analgesic therapy
     Route: 042
     Dates: start: 20250115, end: 20250115
  11. RAMOSETRON HYDROCHLORIDE [Concomitant]
     Active Substance: RAMOSETRON HYDROCHLORIDE
     Indication: Postoperative care
     Route: 042
     Dates: start: 20250115, end: 20250118
  12. Dulcolax [Concomitant]
     Indication: Premedication
     Route: 054
     Dates: start: 20250114, end: 20250114
  13. NORZYME [Concomitant]
     Indication: Prophylaxis
     Route: 048
     Dates: start: 20250121
  14. SILODOSIN [Concomitant]
     Active Substance: SILODOSIN
     Indication: Benign prostatic hyperplasia
     Route: 048
     Dates: start: 20180207, end: 20250114
  15. SILODOSIN [Concomitant]
     Active Substance: SILODOSIN
     Indication: Benign prostatic hyperplasia
     Route: 048
     Dates: start: 20250118
  16. PIPERACILLIN SODIUM\TAZOBACTAM SODIUM [Concomitant]
     Active Substance: PIPERACILLIN SODIUM\TAZOBACTAM SODIUM
     Indication: Infection prophylaxis
     Route: 042
     Dates: start: 20250114, end: 20250121
  17. PHOSTEN [Concomitant]
     Indication: Prophylaxis
     Route: 042
     Dates: start: 20250117, end: 20250120
  18. CETAMADOL [Concomitant]
     Indication: Prophylaxis
     Route: 048
     Dates: start: 20250120
  19. NALOXONE HCL [Concomitant]
     Active Substance: NALOXONE HYDROCHLORIDE
     Indication: Respiratory depression
     Dates: start: 20250117, end: 20250117
  20. AVODART [Concomitant]
     Active Substance: DUTASTERIDE
     Indication: Benign prostatic hyperplasia
     Route: 048
     Dates: start: 20250118
  21. AVODART [Concomitant]
     Active Substance: DUTASTERIDE
     Indication: Benign prostatic hyperplasia
     Route: 048
     Dates: start: 20020614, end: 20250114
  22. MYUNGMOON AMBROXOL HCL [Concomitant]
     Indication: Prophylaxis
     Route: 042
     Dates: start: 20250115, end: 20250119
  23. GASTER [Concomitant]
     Active Substance: FAMOTIDINE
     Indication: Premedication
     Route: 048
     Dates: start: 20250114, end: 20250114
  24. MUCOMYST [Concomitant]
     Active Substance: ACETYLCYSTEINE
     Indication: Prophylaxis
     Route: 042
     Dates: start: 20250117, end: 20250120
  25. ALBUMIN HUMAN [Concomitant]
     Active Substance: ALBUMIN HUMAN
     Indication: Prophylaxis
     Route: 042
     Dates: start: 20250115

REACTIONS (1)
  - Wound evisceration [Recovered/Resolved]

NARRATIVE: CASE EVENT DATE: 20250124
